FAERS Safety Report 7220006-7 (Version None)
Quarter: 2011Q1

REPORT INFORMATION
  Report Type: 
  Country: None (occurrence: None)
  Receive Date: 20110111
  Receipt Date: 20100107
  Transmission Date: 20110831
  Serious: Yes (Other)
  Sender: FDA-Public Use
  Company Number: US-PFIZER INC-2010006134

PATIENT
  Sex: Male

DRUGS (1)
  1. TENORMIN [Suspect]
     Dosage: 50 MG, DAILY
     Route: 048
     Dates: start: 20090101

REACTIONS (1)
  - HERNIA [None]
